FAERS Safety Report 16552196 (Version 6)
Quarter: 2020Q2

REPORT INFORMATION
  Report Type: Spontaneous
  Country: US (occurrence: US)
  Receive Date: 20190710
  Receipt Date: 20200603
  Transmission Date: 20200713
  Serious: Yes (Other)
  Sender: FDA-Public Use
  Company Number: US-PFIZER INC-2019290033

PATIENT
  Age: 66 Year
  Sex: Male

DRUGS (3)
  1. MESALAMINE. [Concomitant]
     Active Substance: MESALAMINE
     Dosage: UNK
  2. XELJANZ [Suspect]
     Active Substance: TOFACITINIB CITRATE
     Indication: COLITIS ULCERATIVE
     Dosage: 10 MG, 2X/DAY
     Route: 048
     Dates: start: 20190310, end: 20190310
  3. XELJANZ [Suspect]
     Active Substance: TOFACITINIB CITRATE
     Dosage: 5 MG, 2X/DAY (ONE TABLET TWICE DAILY)
     Route: 048
     Dates: start: 2019

REACTIONS (11)
  - Urticaria [Recovering/Resolving]
  - Product dose omission [Unknown]
  - Blood pressure increased [Unknown]
  - Off label use [Unknown]
  - Memory impairment [Unknown]
  - Tibia fracture [Unknown]
  - Pruritus [Unknown]
  - Product use issue [Unknown]
  - Blood cholesterol increased [Unknown]
  - Skin discolouration [Recovering/Resolving]
  - Erythema [Unknown]

NARRATIVE: CASE EVENT DATE: 2020
